FAERS Safety Report 4574738-X (Version None)
Quarter: 2005Q1

REPORT INFORMATION
  Report Type: 
  Country: None (occurrence: None)
  Receive Date: 20050204
  Receipt Date: 20050128
  Transmission Date: 20050727
  Serious: Yes (Hospitalization)
  Sender: FDA-Public Use
  Company Number: 236103K04USA

PATIENT
  Age: 53 Year
  Sex: Male
  Weight: 118.8424 kg

DRUGS (14)
  1. REBIF [Suspect]
     Indication: MULTIPLE SCLEROSIS
     Dosage: 44 MCG, 3 IN 1 WEEKS, SUBCUTANEOUS
     Route: 058
     Dates: end: 20041201
  2. REBIF [Suspect]
     Indication: MULTIPLE SCLEROSIS
     Dosage: 44 MCG, 3 IN 1 WEEKS, SUBCUTANEOUS
     Route: 058
     Dates: start: 20041201
  3. TOPROL-XL [Concomitant]
  4. LISINOPRIL [Concomitant]
  5. CATAPRES TTS-2 (CLONIDINE) [Concomitant]
  6. FLUOXETINE [Concomitant]
  7. CRESTOR [Concomitant]
  8. AVANDIA [Concomitant]
  9. AMANTADINE (AMANTADINE) [Concomitant]
  10. FLOMAX [Concomitant]
  11. NAPRELAN [Concomitant]
  12. ASPIRIN [Concomitant]
  13. HIGH-POTENCY MULTIVITAMIN (MULTIVITAMINS) [Concomitant]
  14. VITAMIN B COMPLEX (B-KOMPLEX ^LECIVA) [Concomitant]

REACTIONS (7)
  - CONSTIPATION [None]
  - MULTIPLE SCLEROSIS [None]
  - PANCREATITIS [None]
  - PNEUMONIA [None]
  - REFUSAL OF TREATMENT BY PATIENT [None]
  - SLEEP APNOEA SYNDROME [None]
  - THYROID DISORDER [None]
